FAERS Safety Report 6101058-4 (Version None)
Quarter: 2009Q1

REPORT INFORMATION
  Report Type: 
  Country: None (occurrence: None)
  Receive Date: 20090225
  Receipt Date: 20090216
  Transmission Date: 20090719
  Serious: Yes (Hospitalization, Other)
  Sender: FDA-Public Use
  Company Number: CHPA2009US04546

PATIENT
  Age: 65 Year
  Sex: Female
  Weight: 44.4 kg

DRUGS (5)
  1. MAALOX ANTACID/ANTIGAS MAX LIQ (NCH) (MAGNESIUM HYDROXIDE, ALUMINIUM H [Suspect]
     Indication: DYSPEPSIA
     Dosage: 30 CC, PRN, QD, ORAL
     Route: 048
  2. MAALOX ANTACID/ANTIGAS MAX LIQ (NCH) (MAGNESIUM HYDROXIDE, ALUMINIUM H [Suspect]
     Indication: NAUSEA
     Dosage: 30 CC, PRN, QD, ORAL
     Route: 048
  3. MALOX MS TOTAL STOMACH RELIEF (NCH) (BISMUTH SUBSALICYLATE) SUSPENSION [Suspect]
     Indication: DYSPEPSIA
     Dosage: 30 CC PRN, QD, ORAL
     Route: 048
  4. MALOX MS TOTAL STOMACH RELIEF (NCH) (BISMUTH SUBSALICYLATE) SUSPENSION [Suspect]
     Indication: NAUSEA
     Dosage: 30 CC PRN, QD, ORAL
     Route: 048
  5. PRILOSEC [Concomitant]

REACTIONS (6)
  - CARDIAC ABLATION [None]
  - CARDIAC DISORDER [None]
  - HEART RATE IRREGULAR [None]
  - INCORRECT DOSE ADMINISTERED [None]
  - INTENTIONAL DRUG MISUSE [None]
  - VENTRICULAR EXTRASYSTOLES [None]
